FAERS Safety Report 24134971 (Version 1)
Quarter: 2024Q3

REPORT INFORMATION
  Report Type: Spontaneous
  Country: JP (occurrence: JP)
  Receive Date: 20240725
  Receipt Date: 20240725
  Transmission Date: 20241016
  Serious: Yes (Other)
  Sender: UNITED THERAPEUTICS
  Company Number: JP-UNITED THERAPEUTICS-UNT-2024-008232

PATIENT
  Age: 11 Year
  Sex: Male

DRUGS (1)
  1. UNITUXIN [Suspect]
     Active Substance: DINUTUXIMAB
     Indication: Neuroblastoma
     Dosage: UNK, CYCLICAL (CYCLE 1)
     Route: 041
     Dates: start: 20240123, end: 20240126

REACTIONS (3)
  - Neuroblastoma [Unknown]
  - Mydriasis [Recovering/Resolving]
  - Accommodation disorder [Recovering/Resolving]

NARRATIVE: CASE EVENT DATE: 20240101
